FAERS Safety Report 16768781 (Version 1)
Quarter: 2019Q3

REPORT INFORMATION
  Report Type: Spontaneous
  Country: US (occurrence: US)
  Receive Date: 20190903
  Receipt Date: 20190903
  Transmission Date: 20191005
  Serious: No
  Sender: FDA-Public Use
  Company Number: US-SA-2019SA238144

PATIENT

DRUGS (6)
  1. PREGABALIN. [Suspect]
     Active Substance: PREGABALIN
     Dosage: TAKE 1 CAP (50 MG) NIGHTLY FOR 3-5 DAYS, THEN TWICE DAILY FOR 3-5 DAYS, THEN THREE TIMES DAILY FOR N
     Route: 048
  2. MORPHINE SALT NOT SPECIFIED [Suspect]
     Active Substance: MORPHINE
     Dosage: UNK
  3. TRAMADOL HYDROCHLORIDE. [Suspect]
     Active Substance: TRAMADOL HYDROCHLORIDE
     Dosage: UNK
  4. PLAVIX [Suspect]
     Active Substance: CLOPIDOGREL BISULFATE
     Dosage: UNK
  5. OMEPRAZOLE. [Suspect]
     Active Substance: OMEPRAZOLE
     Dosage: UNK
  6. CODEINE [Suspect]
     Active Substance: CODEINE
     Dosage: UNK

REACTIONS (6)
  - Nausea [Unknown]
  - Vertigo [Unknown]
  - Dizziness [Unknown]
  - Myalgia [Unknown]
  - Haematuria [Unknown]
  - Rash [Unknown]
